FAERS Safety Report 5372282-3 (Version None)
Quarter: 2007Q2

REPORT INFORMATION
  Report Type: 
  Country: None (occurrence: None)
  Receive Date: 20070620
  Receipt Date: 20070226
  Transmission Date: 20071010
  Serious: No
  Sender: FDA-Public Use
  Company Number: 2007RL000082

PATIENT
  Age: 66 Year
  Sex: Female
  Weight: 76.6579 kg

DRUGS (3)
  1. OMACOR [Suspect]
     Indication: HYPERTRIGLYCERIDAEMIA
     Dosage: 4 GM;QD;PO
     Route: 048
     Dates: start: 20061214, end: 20070120
  2. LIPITOR [Concomitant]
  3. ZETIA [Concomitant]

REACTIONS (1)
  - LIVER FUNCTION TEST ABNORMAL [None]
